FAERS Safety Report 20673187 (Version 1)
Quarter: 2022Q2

REPORT INFORMATION
  Report Type: Spontaneous
  Country: US (occurrence: US)
  Receive Date: 20220405
  Receipt Date: 20220405
  Transmission Date: 20220721
  Serious: No
  Sender: FDA-Public Use
  Company Number: US-PFIZER INC-202101597815

PATIENT
  Age: 73 Year
  Sex: Female
  Weight: 58.97 kg

DRUGS (1)
  1. ENBREL [Suspect]
     Active Substance: ETANERCEPT
     Indication: Rheumatoid arthritis
     Dosage: UNK (EVERY COUPLE OF WEEKS)
     Route: 065

REACTIONS (1)
  - Off label use [Unknown]
